FAERS Safety Report 9437362 (Version 1)
Quarter: 2013Q3

REPORT INFORMATION
  Report Type: Spontaneous
  Country: US (occurrence: US)
  Receive Date: 20130802
  Receipt Date: 20130802
  Transmission Date: 20140515
  Serious: Yes (Death)
  Sender: FDA-Public Use
  Company Number: US-JNJFOC-20130702765

PATIENT
  Age: 74 Year
  Sex: Male
  Weight: 121.9 kg

DRUGS (4)
  1. XARELTO [Suspect]
     Indication: CEREBROVASCULAR ACCIDENT PROPHYLAXIS
     Dosage: 9:23 AM ONLY DOSE GIVEN
     Route: 048
     Dates: start: 20130702, end: 20130702
  2. XARELTO [Suspect]
     Indication: ATRIAL FIBRILLATION
     Dosage: 9:23 AM ONLY DOSE GIVEN
     Route: 048
     Dates: start: 20130702, end: 20130702
  3. ASPIRIN [Suspect]
     Indication: PRODUCT USED FOR UNKNOWN INDICATION
     Dosage: STRENGTH: 81 MG
     Route: 048
  4. LOVENOX [Suspect]
     Indication: PRODUCT USED FOR UNKNOWN INDICATION
     Route: 058
     Dates: start: 20130628, end: 20130701

REACTIONS (2)
  - Gastric ulcer haemorrhage [Fatal]
  - Inappropriate schedule of drug administration [Unknown]
